FAERS Safety Report 24704550 (Version 3)
Quarter: 2025Q1

REPORT INFORMATION
  Report Type: Spontaneous
  Country: US (occurrence: US)
  Receive Date: 20241206
  Receipt Date: 20250107
  Transmission Date: 20250409
  Serious: No
  Sender: BRISTOL-MYERS SQUIBB COMPANY
  Company Number: US-BRISTOL-MYERS SQUIBB COMPANY-2024-190084

PATIENT
  Age: 58 Year
  Sex: Female

DRUGS (8)
  1. ELIQUIS [Suspect]
     Active Substance: APIXABAN
     Indication: Atrial fibrillation
     Route: 048
     Dates: start: 20240910, end: 20241009
  2. METOPROLOL TARTRATE [Suspect]
     Active Substance: METOPROLOL TARTRATE
     Indication: Product used for unknown indication
     Route: 048
     Dates: start: 20240910, end: 20241009
  3. DILTIAZEM HYDROCHLORIDE [Suspect]
     Active Substance: DILTIAZEM HYDROCHLORIDE
     Indication: Product used for unknown indication
     Route: 048
     Dates: start: 20240910, end: 20241009
  4. BUSPIRONE [Concomitant]
     Active Substance: BUSPIRONE HYDROCHLORIDE
     Indication: Product used for unknown indication
     Route: 048
     Dates: end: 20241009
  5. VITAMIN C [Concomitant]
     Active Substance: ASCORBIC ACID
     Indication: Product used for unknown indication
     Route: 048
  6. GARLIC [Concomitant]
     Active Substance: GARLIC
     Indication: Product used for unknown indication
     Route: 048
  7. TURMERIC [Concomitant]
     Active Substance: TURMERIC
     Indication: Product used for unknown indication
     Route: 048
  8. COUMADIN [Concomitant]
     Active Substance: WARFARIN SODIUM
     Indication: Product used for unknown indication

REACTIONS (12)
  - Vaginal haemorrhage [Unknown]
  - Varicophlebitis [Unknown]
  - Peripheral venous disease [Unknown]
  - Condition aggravated [Unknown]
  - Bradycardia [Unknown]
  - Peripheral swelling [Unknown]
  - Snoring [Unknown]
  - Fatigue [Unknown]
  - Varicose vein [Unknown]
  - Skin hyperpigmentation [Unknown]
  - Obesity [Unknown]
  - Panic attack [Unknown]

NARRATIVE: CASE EVENT DATE: 20241001
